FAERS Safety Report 22377738 (Version 3)
Quarter: 2023Q2

REPORT INFORMATION
  Report Type: Report from Study
  Country: ES (occurrence: ES)
  Receive Date: 20230529
  Receipt Date: 20230623
  Transmission Date: 20230721
  Serious: Yes (Death, Other)
  Sender: FDA-Public Use
  Company Number: ES-ABBVIE-4728673

PATIENT
  Sex: Female

DRUGS (2)
  1. CARBIDOPA\LEVODOPA [Suspect]
     Active Substance: CARBIDOPA\LEVODOPA
     Indication: Parkinson^s disease
     Dosage: MORNING PUMP: MD 10ML, CD 2.5ML/H AND ED 3.1ML; AFTERNOON PUMP: MD 0, CD 3 ML/H AND ED 3.5 ML
     Route: 050
     Dates: start: 20161130
  2. CARBIDOPA\LEVODOPA [Suspect]
     Active Substance: CARBIDOPA\LEVODOPA

REACTIONS (13)
  - Hepatic cirrhosis [Fatal]
  - Diarrhoea [Not Recovered/Not Resolved]
  - Diarrhoea [Recovered/Resolved]
  - Stoma site discharge [Unknown]
  - Abdominal discomfort [Not Recovered/Not Resolved]
  - Vomiting [Not Recovered/Not Resolved]
  - Internal haemorrhage [Fatal]
  - Urinary tract infection [Unknown]
  - Medical device change [Unknown]
  - Unevaluable event [Unknown]
  - Abdominal rigidity [Unknown]
  - Discomfort [Unknown]
  - Stoma site odour [Unknown]

NARRATIVE: CASE EVENT DATE: 20230101
